FAERS Safety Report 9253939 (Version 2)
Quarter: 2014Q2

REPORT INFORMATION
  Report Type: Spontaneous
  Country: US (occurrence: US)
  Receive Date: 20130425
  Receipt Date: 20140623
  Transmission Date: 20141212
  Serious: Yes (Other)
  Sender: FDA-Public Use
  Company Number: US-BAYER-2013-051745

PATIENT
  Age: 30 Year
  Sex: Female
  Weight: 86.17 kg

DRUGS (17)
  1. YAZ [Suspect]
     Indication: ACNE
     Dosage: UNK
     Dates: start: 200712, end: 201209
  2. YAZ [Suspect]
     Indication: PREMENSTRUAL DYSPHORIC DISORDER
  3. YAZ [Suspect]
     Indication: PREMENSTRUAL SYNDROME
  4. YASMIN [Suspect]
     Indication: ACNE
     Dosage: UNK
     Dates: start: 200712, end: 201209
  5. YASMIN [Suspect]
     Indication: PREMENSTRUAL DYSPHORIC DISORDER
  6. YASMIN [Suspect]
     Indication: PREMENSTRUAL SYNDROME
  7. OCELLA [Suspect]
     Indication: ACNE
     Dosage: UNK
     Dates: start: 200712, end: 201209
  8. OCELLA [Suspect]
     Indication: PREMENSTRUAL DYSPHORIC DISORDER
  9. OCELLA [Suspect]
     Indication: PREMENSTRUAL SYNDROME
  10. LEVOTHYROXINE [Concomitant]
     Dosage: UNK
     Dates: start: 201209
  11. PAROXETINE [Concomitant]
     Indication: ATTENTION DEFICIT/HYPERACTIVITY DISORDER
     Dosage: UNK
     Dates: start: 1998
  12. FLONASE [Concomitant]
     Dosage: 50 ?G, ACT 2 SPRAYS DAILY
     Dates: start: 20120829
  13. PAXIL [Concomitant]
     Dosage: 30 MG, UNK
     Dates: start: 20120829
  14. FOLTRIN [Concomitant]
     Dosage: 1 TAB TWICE DAILY
     Dates: start: 20120829
  15. SYNTHROID [Concomitant]
     Dosage: 0.05 MG, ONCE DAILY
     Dates: start: 20120829
  16. ADIPEX-P [Concomitant]
     Dosage: 27.5 MG, ONCE DAILY
     Dates: start: 20120829
  17. LORTAB [Concomitant]
     Dosage: 5-500 MG 1-2 TABS Q6HR X 10
     Dates: start: 20120829

REACTIONS (5)
  - Deep vein thrombosis [None]
  - Injury [None]
  - Pain [None]
  - Pain [None]
  - Thrombophlebitis superficial [Recovering/Resolving]
